FAERS Safety Report 9912844 (Version 2)
Quarter: 2014Q2

REPORT INFORMATION
  Report Type: Spontaneous
  Country: US (occurrence: US)
  Receive Date: 20140220
  Receipt Date: 20140407
  Transmission Date: 20141212
  Serious: No
  Sender: FDA-Public Use
  Company Number: US-PFIZER INC-2014049615

PATIENT
  Age: 66 Year
  Sex: Female
  Weight: 62.59 kg

DRUGS (6)
  1. LYRICA [Suspect]
     Indication: FIBROMYALGIA
     Dosage: 50 MG, DAILY
     Dates: start: 20140201
  2. TOPAMAX [Concomitant]
     Dosage: UNK
  3. LEVOTHYROXINE SODIUM [Concomitant]
     Dosage: UNK
  4. ZOMIG [Concomitant]
     Indication: MIGRAINE
     Dosage: UNK, AS NEEDED
  5. AMITRIPTYLINE [Concomitant]
     Indication: BRUXISM
     Dosage: 10 MG, UNK
  6. BACLOFEN [Concomitant]
     Indication: MUSCLE RELAXANT THERAPY
     Dosage: HALF TABLET OF 10 MG DAILY

REACTIONS (3)
  - Somnolence [Unknown]
  - Hypersomnia [Unknown]
  - Blood cortisol abnormal [Unknown]
